FAERS Safety Report 7976200-0 (Version None)
Quarter: 2011Q4

REPORT INFORMATION
  Report Type: 
  Country: None (occurrence: None)
  Receive Date: 20111213
  Receipt Date: 20111014
  Transmission Date: 20120403
  Serious: No
  Sender: FDA-Public Use
  Company Number: US-AMGEN-USASP2011053196

PATIENT
  Age: 46 Year
  Sex: Female

DRUGS (3)
  1. ORENCIA [Concomitant]
     Dosage: UNK
     Dates: start: 20080101
  2. ENBREL [Suspect]
     Indication: RHEUMATOID ARTHRITIS
     Dosage: 50 MG, QWK
     Dates: start: 20050201
  3. TREXALL [Concomitant]
     Dates: start: 20080901

REACTIONS (4)
  - INJECTION SITE HAEMORRHAGE [None]
  - ADVERSE DRUG REACTION [None]
  - INJECTION SITE PAIN [None]
  - DRUG INEFFECTIVE [None]
